FAERS Safety Report 7907395-2 (Version None)
Quarter: 2011Q4

REPORT INFORMATION
  Report Type: 
  Country: None (occurrence: None)
  Receive Date: 20111110
  Receipt Date: 20111110
  Transmission Date: 20120403
  Serious: Yes (Hospitalization)
  Sender: FDA-Public Use
  Company Number: AU-BAYER-2011-108615

PATIENT
  Sex: Female

DRUGS (5)
  1. PERINDOPRIL ERBUMINE [Concomitant]
  2. NEXIUM [Concomitant]
  3. ULTRAVIST 150 [Suspect]
     Indication: ABDOMEN SCAN
     Dosage: UNK
     Route: 042
     Dates: start: 20111109, end: 20111109
  4. ULTRAVIST 150 [Suspect]
     Indication: IMAGING PROCEDURE
  5. LEVOTHYROXINE SODIUM [Concomitant]

REACTIONS (5)
  - NAUSEA [None]
  - LOSS OF CONSCIOUSNESS [None]
  - PARALYSIS [None]
  - VOMITING [None]
  - RESPIRATORY ARREST [None]
